FAERS Safety Report 5523709-5 (Version None)
Quarter: 2007Q4

REPORT INFORMATION
  Report Type: 
  Country: None (occurrence: None)
  Receive Date: 20071121
  Receipt Date: 20071113
  Transmission Date: 20080405
  Serious: Yes (Death)
  Sender: FDA-Public Use
  Company Number: US-JNJFOC-20071105476

PATIENT
  Sex: Male
  Weight: 70.31 kg

DRUGS (6)
  1. DURAGESIC-100 [Suspect]
     Indication: PAIN
     Route: 062
  2. MORPHINE [Concomitant]
     Indication: PAIN
     Route: 048
  3. CHEMOTHERAPY DRUGS [Concomitant]
     Indication: PANCREATIC CARCINOMA
     Route: 042
  4. VICODIN [Concomitant]
     Indication: PAIN
     Route: 048
  5. PREDNISONE TAB [Concomitant]
     Indication: DRUG USE FOR UNKNOWN INDICATION
     Route: 048
  6. MEGACE [Concomitant]
     Indication: DECREASED APPETITE
     Route: 048

REACTIONS (1)
  - PANCREATIC CARCINOMA [None]
